FAERS Safety Report 5129821-7 (Version None)
Quarter: 2006Q4

REPORT INFORMATION
  Report Type: 
  Country: None (occurrence: None)
  Receive Date: 20061018
  Receipt Date: 20061009
  Transmission Date: 20070319
  Serious: Yes (Hospitalization, Other)
  Sender: FDA-Public Use
  Company Number: DE-JNJFOC-20061001906

PATIENT
  Age: 19 Year
  Sex: Male

DRUGS (4)
  1. REMICADE [Suspect]
     Indication: CROHN'S DISEASE
     Dosage: 5 INFUSIONS
     Route: 042
  2. GENOTROPIN [Concomitant]
     Indication: BODY HEIGHT BELOW NORMAL
     Route: 048
  3. DECORTIN [Concomitant]
     Indication: CROHN'S DISEASE
     Dosage: 1-2 MG
     Route: 048
  4. 5-ASA [Concomitant]
     Indication: CROHN'S DISEASE
     Route: 048

REACTIONS (1)
  - COLORECTAL CANCER [None]
